FAERS Safety Report 13746424 (Version 1)
Quarter: 2017Q3

REPORT INFORMATION
  Report Type: Report from Study
  Country: None (occurrence: US)
  Receive Date: 20170712
  Receipt Date: 20170712
  Transmission Date: 20171127
  Serious: Yes (Hospitalization, Other)
  Sender: FDA-Public Use
  Company Number: US-IPSEN BIOPHARMACEUTICALS, INC.-2012-2744

PATIENT
  Age: 41 Year
  Sex: Female
  Weight: 94.8 kg

DRUGS (3)
  1. ANTIHYPERTENSIVES NOS [Concomitant]
     Indication: HYPERTENSION
     Dosage: NOT REPORTED
     Route: 065
  2. SOMATULINE DEPOT [Suspect]
     Active Substance: LANREOTIDE ACETATE
     Indication: ACROMEGALY
     Dosage: 90 MG, ONCE EVERY 28 DAYS
     Route: 065
     Dates: start: 20100415
  3. PARLODEL [Concomitant]
     Active Substance: BROMOCRIPTINE MESYLATE
     Indication: ACROMEGALY
     Dosage: NOT REPORTED
     Route: 065
     Dates: start: 20081015

REACTIONS (1)
  - Cholecystitis acute [None]

NARRATIVE: CASE EVENT DATE: 20110625
